FAERS Safety Report 8958881 (Version 2)
Quarter: 2012Q4

REPORT INFORMATION
  Report Type: Report from Study
  Country: US (occurrence: US)
  Receive Date: 20121211
  Receipt Date: 20121227
  Transmission Date: 20130627
  Serious: Yes (Hospitalization)
  Sender: FDA-Public Use
  Company Number: US-TEVA-374442USA

PATIENT
  Age: 59 Year
  Sex: Female
  Weight: 133.75 kg

DRUGS (17)
  1. DOXORUBICIN [Suspect]
     Indication: SARCOMA
     Dates: start: 20121024
  2. DOXORUBICIN [Suspect]
     Dosage: 75 mglm2 /165 mg/ IV Bolus Cycle 2 Regimen #2
     Dates: start: 20121115, end: 20121115
  3. DOXORUBICIN [Suspect]
     Dosage: Regimen#2 300 mg/m2/ 660 mg /Infusion, cycle 2 day 1
     Dates: start: 20121115, end: 20121115
  4. TH-302 [Suspect]
     Indication: SARCOMA
     Dates: start: 20121024
  5. ATENOLOL [Concomitant]
     Dates: start: 1998
  6. ALLOPURINOL [Concomitant]
     Dates: start: 2012
  7. COMPAZINE [Concomitant]
     Dates: start: 20121024
  8. HYDROCHLOROTHIAZIDE [Concomitant]
     Dates: start: 2012
  9. IMODIUM [Concomitant]
     Dates: start: 20121102
  10. LEVOTHYROXINE [Concomitant]
     Dates: start: 2010
  11. METFORMIN [Concomitant]
     Dates: start: 2010
  12. LANTUS [Concomitant]
     Dates: start: 201207
  13. PAROXETINE HYDROCHLORIDE [Concomitant]
     Dates: start: 1998
  14. SIMVASTATIN [Concomitant]
     Dates: start: 2010
  15. INSULIN [Concomitant]
     Dates: start: 2004
  16. ZOFRAN [Concomitant]
     Dates: start: 2004
  17. PERCOCET [Concomitant]
     Dates: start: 20121024

REACTIONS (3)
  - Renal failure [Not Recovered/Not Resolved]
  - Dehydration [Recovered/Resolved]
  - Diarrhoea [Unknown]
